FAERS Safety Report 4627866-4 (Version None)
Quarter: 2005Q2

REPORT INFORMATION
  Report Type: 
  Country: None (occurrence: None)
  Receive Date: 20050406
  Receipt Date: 20050328
  Transmission Date: 20051028
  Serious: Yes (Other)
  Sender: FDA-Public Use
  Company Number: US-JNJFOC-20050300823

PATIENT
  Sex: Male
  Weight: 114.31 kg

DRUGS (7)
  1. REMICADE [Suspect]
     Route: 042
  2. REMICADE [Suspect]
     Indication: RHEUMATOID ARTHRITIS
     Route: 042
  3. TRAZADONE [Concomitant]
  4. AVANDIA [Concomitant]
  5. TRICOR [Concomitant]
  6. ASPIRIN [Concomitant]
  7. NORVASC [Concomitant]

REACTIONS (2)
  - DIABETES MELLITUS [None]
  - HODGKIN'S DISEASE [None]
